FAERS Safety Report 5594443-0 (Version None)
Quarter: 2008Q1

REPORT INFORMATION
  Report Type: 
  Country: None (occurrence: None)
  Receive Date: 20080117
  Receipt Date: 20071217
  Transmission Date: 20080703
  Serious: No
  Sender: FDA-Public Use
  Company Number: US-BAYER-200716598NA

PATIENT
  Age: 75 Year
  Sex: Male

DRUGS (4)
  1. LEVITRA [Suspect]
     Indication: ERECTILE DYSFUNCTION
     Dosage: TOTAL DAILY DOSE: 5 MG  UNIT DOSE: 5 MG
     Route: 048
     Dates: start: 20071208
  2. LEVITRA [Suspect]
     Dosage: TOTAL DAILY DOSE: 5 MG  UNIT DOSE: 5 MG
     Route: 048
     Dates: start: 20071215, end: 20071215
  3. LISINOPRIL [Concomitant]
     Dosage: TOTAL DAILY DOSE: 5 MG
  4. SINGULAIR [Concomitant]
     Indication: PRURITUS

REACTIONS (1)
  - DRUG INEFFECTIVE [None]
